FAERS Safety Report 18069022 (Version 4)
Quarter: 2020Q3

REPORT INFORMATION
  Report Type: Report from Study
  Country: US (occurrence: US)
  Receive Date: 20200725
  Receipt Date: 20200831
  Transmission Date: 20201103
  Serious: Yes (Death, Life-Threatening, Hospitalization, Other)
  Sender: FDA-Public Use
  Company Number: NVSC2020US206961

PATIENT
  Age: 62 Year
  Sex: Female
  Weight: 64.8 kg

DRUGS (2)
  1. KYMRIAH [Suspect]
     Active Substance: TISAGENLECLEUCEL
     Indication: DIFFUSE LARGE B-CELL LYMPHOMA RECURRENT
     Dosage: 0.9 X10^8 CAR?POSITIVE VIABLE T CELLS
     Route: 042
     Dates: start: 20200619, end: 20200619
  2. ATIVAN [Suspect]
     Active Substance: LORAZEPAM
     Indication: PRODUCT USED FOR UNKNOWN INDICATION
     Dosage: UNK
     Route: 065

REACTIONS (39)
  - Pyrexia [Unknown]
  - Physical deconditioning [Unknown]
  - Subarachnoid haemorrhage [Unknown]
  - Neutropenia [Unknown]
  - Somnolence [Unknown]
  - Tachycardia [Unknown]
  - Carotid artery aneurysm [Unknown]
  - Vaginal haemorrhage [Unknown]
  - Acute respiratory distress syndrome [Fatal]
  - Hypotension [Unknown]
  - Atelectasis [Unknown]
  - Vision blurred [Unknown]
  - Blood glucose increased [Unknown]
  - Blood alkaline phosphatase increased [Unknown]
  - Hyperchloraemia [Unknown]
  - Aspartate aminotransferase increased [Unknown]
  - Cytokine release syndrome [Fatal]
  - Fluid overload [Unknown]
  - Generalised oedema [Unknown]
  - Enterococcal infection [Unknown]
  - Blood urea increased [Unknown]
  - Neutropenic sepsis [Unknown]
  - Insomnia [Unknown]
  - Haemophagocytic lymphohistiocytosis [Fatal]
  - Urinary tract infection [Fatal]
  - Circulatory collapse [Recovered/Resolved]
  - Ascites [Unknown]
  - Leuconostoc infection [Unknown]
  - Pleural effusion [Unknown]
  - Pancytopenia [Unknown]
  - Delirium [Unknown]
  - Blood sodium increased [Unknown]
  - Blood bilirubin increased [Unknown]
  - Platelet count decreased [Unknown]
  - Lactic acidosis [Fatal]
  - Neurotoxicity [Fatal]
  - Left ventricular dysfunction [Unknown]
  - White blood cell count decreased [Unknown]
  - Anaemia [Unknown]

NARRATIVE: CASE EVENT DATE: 20200620
